FAERS Safety Report 14509104 (Version 2)
Quarter: 2018Q1

REPORT INFORMATION
  Report Type: Spontaneous
  Country: US (occurrence: US)
  Receive Date: 20180209
  Receipt Date: 20180328
  Transmission Date: 20180509
  Serious: Yes (Hospitalization, Other)
  Sender: FDA-Public Use
  Company Number: US-ASTRAZENECA-2018SE16254

PATIENT
  Age: 264 Day
  Sex: Male
  Weight: 8.1 kg

DRUGS (5)
  1. SYNAGIS [Suspect]
     Active Substance: PALIVIZUMAB
     Indication: PULMONARY VALVE STENOSIS
     Dosage: MONTHLY
     Route: 030
     Dates: start: 20171116, end: 20180322
  2. PANTOPRAZOLE [Concomitant]
     Active Substance: PANTOPRAZOLE
     Route: 048
  3. SYNAGIS [Suspect]
     Active Substance: PALIVIZUMAB
     Indication: ANTIVIRAL PROPHYLAXIS
     Dosage: MONTHLY
     Route: 030
     Dates: start: 20171116, end: 20180322
  4. SYNAGIS [Suspect]
     Active Substance: PALIVIZUMAB
     Indication: UNIVENTRICULAR HEART
     Dosage: MONTHLY
     Route: 030
     Dates: start: 20171116, end: 20180322
  5. ASPIRIN CHEWABLE [Concomitant]
     Active Substance: ASPIRIN
     Indication: VASCULAR STENT STENOSIS
     Dosage: 1/2 DAILY
     Route: 048

REACTIONS (5)
  - Diarrhoea [Unknown]
  - Metabolic acidosis [Unknown]
  - Respiratory syncytial virus infection [Recovering/Resolving]
  - Hypophagia [Unknown]
  - Vomiting [Unknown]

NARRATIVE: CASE EVENT DATE: 20180128
